FAERS Safety Report 8130173-9 (Version None)
Quarter: 2012Q1

REPORT INFORMATION
  Report Type: 
  Country: None (occurrence: None)
  Receive Date: 20120210
  Receipt Date: 20120202
  Transmission Date: 20120608
  Serious: Yes (Hospitalization, Other)
  Sender: FDA-Public Use
  Company Number: US-ELI_LILLY_AND_COMPANY-US201110004519

PATIENT
  Age: 55 Year
  Sex: Female
  Weight: 97.506 kg

DRUGS (3)
  1. ANTIDEPRESSANTS [Concomitant]
     Dosage: UNK, QD
  2. BYETTA [Suspect]
     Dosage: 5 UG, BID
     Dates: start: 20071023, end: 20080624
  3. ANTIBIOTICS [Concomitant]
     Indication: SINUSITIS

REACTIONS (2)
  - PANCREATITIS [None]
  - CHOLELITHIASIS [None]
